FAERS Safety Report 21533896 (Version 4)
Quarter: 2023Q2

REPORT INFORMATION
  Report Type: Report from Study
  Country: CN (occurrence: CN)
  Receive Date: 20221101
  Receipt Date: 20230526
  Transmission Date: 20230721
  Serious: Yes (Other)
  Sender: FDA-Public Use
  Company Number: CN-TAKEDA-2022TUS049430

PATIENT
  Age: 67 Year
  Sex: Male
  Weight: 69 kg

DRUGS (17)
  1. VEDOLIZUMAB [Suspect]
     Active Substance: VEDOLIZUMAB
     Indication: Colitis ulcerative
     Dosage: 300 MILLIGRAM
     Route: 042
     Dates: start: 20220408
  2. AMLODIPINE BESYLATE [Concomitant]
     Active Substance: AMLODIPINE BESYLATE
     Indication: Hypertension
     Dosage: 5 MILLIGRAM, QD
     Route: 048
     Dates: start: 20220328, end: 20220403
  3. AMLODIPINE BESYLATE [Concomitant]
     Active Substance: AMLODIPINE BESYLATE
     Dosage: 5 MILLIGRAM, QD
     Route: 048
     Dates: start: 20220415, end: 20220721
  4. FLUNARIZINE HYDROCHLORIDE [Concomitant]
     Active Substance: FLUNARIZINE HYDROCHLORIDE
     Indication: Dizziness
     Dosage: 5 MILLIGRAM, QD
     Route: 048
     Dates: start: 20220328, end: 20220403
  5. FLUNARIZINE HYDROCHLORIDE [Concomitant]
     Active Substance: FLUNARIZINE HYDROCHLORIDE
     Dosage: 5 MILLIGRAM, QD
     Route: 048
     Dates: start: 20220415, end: 20220721
  6. METHYLPREDNISOLONE [Concomitant]
     Active Substance: METHYLPREDNISOLONE
     Indication: Epstein-Barr virus infection
     Dosage: 28 MILLIGRAM, QD
     Route: 048
     Dates: start: 20220328, end: 20220404
  7. METHYLPREDNISOLONE [Concomitant]
     Active Substance: METHYLPREDNISOLONE
     Dosage: 28 MILLIGRAM, QD
     Route: 048
     Dates: start: 20220408, end: 20220416
  8. CALCIUM CARBONATE\CHOLECALCIFEROL [Concomitant]
     Active Substance: CALCIUM CARBONATE\CHOLECALCIFEROL
     Indication: Inflammatory bowel disease
     Dosage: 0.6 GRAM, QD
     Route: 048
     Dates: start: 20220328, end: 20220403
  9. CALCIUM CARBONATE\CHOLECALCIFEROL [Concomitant]
     Active Substance: CALCIUM CARBONATE\CHOLECALCIFEROL
     Dosage: 0.6 GRAM, QD
     Route: 048
     Dates: start: 20220415, end: 20220721
  10. ESOMEPRAZOLE MAGNESIUM [Concomitant]
     Active Substance: ESOMEPRAZOLE MAGNESIUM
     Indication: Chronic gastritis
     Dosage: 20 MILLIGRAM, QD
     Route: 048
     Dates: start: 20220328, end: 20220403
  11. ESOMEPRAZOLE MAGNESIUM [Concomitant]
     Active Substance: ESOMEPRAZOLE MAGNESIUM
     Dosage: 20 MILLIGRAM, QD
     Route: 048
     Dates: start: 20220408, end: 20220721
  12. VALACYCLOVIR HYDROCHLORIDE [Concomitant]
     Active Substance: VALACYCLOVIR HYDROCHLORIDE
     Indication: Epstein-Barr virus infection
     Dosage: 0.3 GRAM, QD
     Route: 048
     Dates: start: 20220328, end: 20220403
  13. VALACYCLOVIR HYDROCHLORIDE [Concomitant]
     Active Substance: VALACYCLOVIR HYDROCHLORIDE
     Dosage: 0.6 GRAM, BID
     Route: 048
     Dates: start: 20220415, end: 20220421
  14. METOPROLOL TARTRATE [Concomitant]
     Active Substance: METOPROLOL TARTRATE
     Indication: Sinus tachycardia
     Dosage: 125 MILLIGRAM, BID
     Route: 048
     Dates: start: 20220328, end: 20220403
  15. METOPROLOL TARTRATE [Concomitant]
     Active Substance: METOPROLOL TARTRATE
     Dosage: 125 MILLIGRAM, BID
     Route: 048
     Dates: start: 20220415, end: 20220721
  16. GANCICLOVIR [Concomitant]
     Active Substance: GANCICLOVIR
     Indication: Epstein-Barr virus infection
     Dosage: 0.25 GRAM, Q12H
     Route: 042
     Dates: start: 20220325, end: 20220328
  17. LEVOFLOXACIN HYDROCHLORIDE [Concomitant]
     Active Substance: LEVOFLOXACIN HYDROCHLORIDE
     Indication: Inflammatory bowel disease
     Dosage: 0.5 GRAM, QD
     Route: 048
     Dates: start: 20220408, end: 20220421

REACTIONS (10)
  - Aortic arteriosclerosis [Not Recovered/Not Resolved]
  - Cervical spinal stenosis [Recovering/Resolving]
  - Sleep disorder [Not Recovered/Not Resolved]
  - Gastric polyps [Recovered/Resolved]
  - Large intestine polyp [Recovered/Resolved]
  - Intervertebral disc protrusion [Recovering/Resolving]
  - Anxiety [Recovering/Resolving]
  - Sleep apnoea syndrome [Not Recovered/Not Resolved]
  - Blood potassium decreased [Recovered/Resolved]
  - Pruritus [Recovered/Resolved]

NARRATIVE: CASE EVENT DATE: 20220415
